FAERS Safety Report 5660287-4 (Version None)
Quarter: 2008Q1

REPORT INFORMATION
  Report Type: 
  Country: None (occurrence: None)
  Receive Date: 20080214
  Receipt Date: 20071204
  Transmission Date: 20080703
  Serious: No
  Sender: FDA-Public Use
  Company Number: WAES 0712USA01462

PATIENT
  Age: 55 Year
  Sex: Male

DRUGS (5)
  1. ISENTRESS [Suspect]
     Indication: HIV INFECTION
     Dosage: 400 MG/BID/PO
     Route: 048
     Dates: start: 20071115, end: 20071129
  2. APTIVUS [Concomitant]
  3. FUZEON [Concomitant]
  4. TRUVADA [Concomitant]
  5. [THERAPY UNSPECIFIED] [Concomitant]

REACTIONS (2)
  - HEPATIC ENZYME INCREASED [None]
  - RASH GENERALISED [None]
